FAERS Safety Report 6291935-6 (Version None)
Quarter: 2009Q3

REPORT INFORMATION
  Report Type: 
  Country: None (occurrence: None)
  Receive Date: 20090729
  Receipt Date: 20090722
  Transmission Date: 20100115
  Serious: Yes (Other)
  Sender: FDA-Public Use
  Company Number: 2009SP016576

PATIENT

DRUGS (1)
  1. MIRALAX [Suspect]
     Indication: DRUG USE FOR UNKNOWN INDICATION
     Dosage: ; ONCE; PO
     Route: 048
     Dates: start: 20090718, end: 20090718

REACTIONS (1)
  - FAECES DISCOLOURED [None]
